FAERS Safety Report 5109735-9 (Version None)
Quarter: 2006Q3

REPORT INFORMATION
  Report Type: 
  Country: None (occurrence: None)
  Receive Date: 20060918
  Receipt Date: 20060904
  Transmission Date: 20061208
  Serious: Yes (Life-Threatening, Hospitalization)
  Sender: FDA-Public Use
  Company Number: DE-2006-023711

PATIENT
  Age: 47 Year
  Sex: Female

DRUGS (1)
  1. BETAFERON [Suspect]
     Indication: MULTIPLE SCLEROSIS
     Route: 058

REACTIONS (3)
  - PELVIC VENOUS THROMBOSIS [None]
  - PULMONARY EMBOLISM [None]
  - VENA CAVA THROMBOSIS [None]
